FAERS Safety Report 8258141-7 (Version None)
Quarter: 2012Q2

REPORT INFORMATION
  Report Type: 
  Country: None (occurrence: None)
  Receive Date: 20120404
  Receipt Date: 20120320
  Transmission Date: 20120825
  Serious: Yes (Other)
  Sender: FDA-Public Use
  Company Number: PHHY2012DE024587

PATIENT
  Sex: Male

DRUGS (1)
  1. MYFORTIC [Suspect]
     Route: 064

REACTIONS (1)
  - RESPIRATORY DISORDER NEONATAL [None]
